FAERS Safety Report 4742233-0 (Version None)
Quarter: 2005Q3

REPORT INFORMATION
  Report Type: 
  Country: None (occurrence: None)
  Receive Date: 20050811
  Receipt Date: 20050325
  Transmission Date: 20060218
  Serious: No
  Sender: FDA-Public Use
  Company Number: US-GLAXOSMITHKLINE-A0551297A

PATIENT
  Age: 28 Year
  Sex: Female
  Weight: 74.1 kg

DRUGS (2)
  1. PAXIL CR [Suspect]
     Indication: DEPRESSION
     Dosage: 25MG PER DAY
     Route: 048
  2. XANAX [Concomitant]
     Dosage: .25MG UNKNOWN
     Route: 048
     Dates: start: 20050209

REACTIONS (1)
  - CONTUSION [None]
